FAERS Safety Report 9818435 (Version 2)
Quarter: 2014Q1

REPORT INFORMATION
  Report Type: Spontaneous
  Country: US (occurrence: US)
  Receive Date: 20140115
  Receipt Date: 20140124
  Transmission Date: 20141002
  Serious: No
  Sender: FDA-Public Use
  Company Number: US-PFIZER INC-2014012788

PATIENT
  Sex: Female

DRUGS (2)
  1. CHANTIX [Suspect]
     Dosage: UNK
     Route: 048
     Dates: start: 2010
  2. CHANTIX [Suspect]
     Dosage: UNK
     Route: 048
     Dates: start: 201312

REACTIONS (1)
  - Nausea [Recovered/Resolved]
